FAERS Safety Report 10331573 (Version 2)
Quarter: 2014Q3

REPORT INFORMATION
  Report Type: Report from Study
  Country: US (occurrence: US)
  Receive Date: 20140722
  Receipt Date: 20140814
  Transmission Date: 20150326
  Serious: Yes (Death)
  Sender: FDA-Public Use
  Company Number: US-SA-2014SA094141

PATIENT
  Age: 6 Year
  Sex: Female
  Weight: 17 kg

DRUGS (6)
  1. CASPOFUNGIN [Concomitant]
     Active Substance: CASPOFUNGIN
     Indication: SYSTEMIC CANDIDA
     Dates: start: 20140624, end: 20140713
  2. CAMPATH [Suspect]
     Active Substance: ALEMTUZUMAB
     Indication: HISTIOCYTOSIS HAEMATOPHAGIC
     Route: 058
     Dates: start: 20140626, end: 20140630
  3. MEROPENEM. [Concomitant]
     Active Substance: MEROPENEM
     Indication: BACTERAEMIA
     Dates: start: 20140618, end: 20140713
  4. ETOPOSIDE. [Concomitant]
     Active Substance: ETOPOSIDE
     Indication: HISTIOCYTOSIS HAEMATOPHAGIC
     Dates: start: 20140615, end: 20140623
  5. DEXAMETHASONE. [Concomitant]
     Active Substance: DEXAMETHASONE
     Indication: HISTIOCYTOSIS HAEMATOPHAGIC
     Dates: start: 20140614, end: 20140713
  6. AMBISONE [Concomitant]
     Active Substance: AMPHOTERICIN B
     Indication: SYSTEMIC CANDIDA
     Dates: start: 20140623, end: 20140625

REACTIONS (4)
  - Disease progression [Fatal]
  - Cardiac failure [Fatal]
  - Off label use [Unknown]
  - Respiratory distress [Fatal]
